FAERS Safety Report 4292110-7 (Version None)
Quarter: 2004Q1

REPORT INFORMATION
  Report Type: 
  Country: None (occurrence: None)
  Receive Date: 20040210
  Receipt Date: 20040210
  Transmission Date: 20041129
  Serious: Yes (Death)
  Sender: FDA-Public Use
  Company Number: None

PATIENT
  Age: 52 Year
  Sex: Male
  Weight: 50 kg

DRUGS (1)
  1. TISSEEL VH KIT [Suspect]
     Indication: HEPATECTOMY

REACTIONS (7)
  - CARDIO-RESPIRATORY ARREST [None]
  - ELECTROMECHANICAL DISSOCIATION [None]
  - HYPOTENSION [None]
  - INTRACARDIAC THROMBUS [None]
  - POST PROCEDURAL COMPLICATION [None]
  - POST PROCEDURAL HAEMORRHAGE [None]
  - VENTRICULAR DYSFUNCTION [None]
